FAERS Safety Report 5759406-0 (Version None)
Quarter: 2008Q2

REPORT INFORMATION
  Report Type: 
  Country: None (occurrence: None)
  Receive Date: 20080507
  Receipt Date: 20071114
  Transmission Date: 20081010
  Serious: Yes (Other)
  Sender: FDA-Public Use
  Company Number: 230301J07USA

PATIENT
  Age: 30 Year
  Sex: Female
  Weight: 86.1834 kg

DRUGS (5)
  1. REBIF [Suspect]
     Indication: MULTIPLE SCLEROSIS
     Dosage: 44 MCG, 3 IN 1 WEEKS, SUBCUTANEOUS
     Route: 058
     Dates: start: 20071012, end: 20071115
  2. TOPAMAX [Concomitant]
  3. LUPRON [Concomitant]
  4. RELPAX [Concomitant]
  5. EFFEXOR XR [Concomitant]

REACTIONS (1)
  - HEPATIC ENZYME INCREASED [None]
